FAERS Safety Report 7605898-1 (Version None)
Quarter: 2011Q3

REPORT INFORMATION
  Report Type: 
  Country: None (occurrence: None)
  Receive Date: 20110713
  Receipt Date: 20110630
  Transmission Date: 20111222
  Serious: Yes (Hospitalization, Other)
  Sender: FDA-Public Use
  Company Number: US-BAYER-2011-052119

PATIENT
  Age: 38 Year
  Sex: Female

DRUGS (1)
  1. NEXAVAR [Suspect]
     Indication: SARCOMA
     Dosage: 400 MG, BID
     Dates: start: 20110606

REACTIONS (12)
  - PULMONARY OEDEMA [None]
  - FATIGUE [None]
  - RECTAL HAEMORRHAGE [None]
  - ERYTHEMA [None]
  - DRY SKIN [None]
  - DECREASED APPETITE [None]
  - VAGINAL DISCHARGE [None]
  - OEDEMA [None]
  - ANORECTAL DISCOMFORT [None]
  - FREQUENT BOWEL MOVEMENTS [None]
  - PYREXIA [None]
  - PAIN OF SKIN [None]
